FAERS Safety Report 15681258 (Version 1)
Quarter: 2018Q4

REPORT INFORMATION
  Report Type: Spontaneous
  Country: US (occurrence: US)
  Receive Date: 20181202
  Receipt Date: 20181202
  Transmission Date: 20190205
  Serious: Yes (Other)
  Sender: FDA-Public Use
  Company Number: None

PATIENT
  Age: 33 Year
  Sex: Female

DRUGS (1)
  1. NEXPLANON [Suspect]
     Active Substance: ETONOGESTREL

REACTIONS (8)
  - Headache [None]
  - Device dislocation [None]
  - Complication associated with device [None]
  - Weight decreased [None]
  - Menorrhagia [None]
  - Hair growth abnormal [None]
  - Vision blurred [None]
  - Alopecia [None]

NARRATIVE: CASE EVENT DATE: 20170704
